FAERS Safety Report 9503122 (Version 1)
Quarter: 2013Q3

REPORT INFORMATION
  Report Type: Spontaneous
  Country: US (occurrence: US)
  Receive Date: 20130906
  Receipt Date: 20130906
  Transmission Date: 20140515
  Serious: Yes (Other)
  Sender: FDA-Public Use
  Company Number: US-ELI_LILLY_AND_COMPANY-US201308008371

PATIENT
  Sex: Female
  Weight: 58.96 kg

DRUGS (3)
  1. PROZAC [Suspect]
     Indication: MAJOR DEPRESSION
     Dosage: UNK
  2. DIAZEPAM [Concomitant]
     Indication: ANXIETY
     Dosage: 10 MG, BID
  3. AMBIEN [Concomitant]
     Indication: INSOMNIA
     Dosage: 10 MG, PRN

REACTIONS (2)
  - Back pain [Unknown]
  - Drug ineffective [Unknown]
